FAERS Safety Report 4682187-9 (Version None)
Quarter: 2005Q2

REPORT INFORMATION
  Report Type: 
  Country: None (occurrence: None)
  Receive Date: 20050602
  Receipt Date: 20050527
  Transmission Date: 20051028
  Serious: Yes (Life-Threatening)
  Sender: FDA-Public Use
  Company Number: 2005-128190-NL

PATIENT
  Age: 56 Year
  Sex: Male

DRUGS (5)
  1. PANCURONIUM BROMIDE [Suspect]
     Indication: GENERAL ANAESTHESIA
     Dosage: 4 MG ONCE/2 MG ONCE
     Route: 042
     Dates: start: 20050511, end: 20050511
  2. PANCURONIUM BROMIDE [Suspect]
     Indication: GENERAL ANAESTHESIA
     Dosage: 4 MG ONCE/2 MG ONCE
     Route: 042
     Dates: start: 20050511, end: 20050511
  3. PROPOFOL [Suspect]
     Indication: GENERAL ANAESTHESIA
     Dosage: 5 ML ONCE
     Route: 042
     Dates: start: 20050511, end: 20050511
  4. PROPOFOL [Suspect]
     Indication: GENERAL ANAESTHESIA
     Dosage: 5 ML ONCE
     Route: 042
     Dates: start: 20050511, end: 20050511
  5. NICARDIPINE HCL [Concomitant]

REACTIONS (1)
  - ANAPHYLACTIC SHOCK [None]
